FAERS Safety Report 11800569 (Version 1)
Quarter: 2015Q4

REPORT INFORMATION
  Report Type: Spontaneous
  Country: FR (occurrence: FR)
  Receive Date: 20151204
  Receipt Date: 20151204
  Transmission Date: 20160305
  Serious: Yes (Death, Hospitalization, Other)
  Sender: FDA-Public Use
  Company Number: FR-UCBSA-2015038733

PATIENT
  Age: 85 Year
  Sex: Female

DRUGS (1)
  1. VIMPAT [Suspect]
     Active Substance: LACOSAMIDE
     Indication: EPILEPSY
     Dosage: UNKNOWN DOSE AND FREQUENCY
     Dates: start: 2015

REACTIONS (2)
  - Bradycardia [Unknown]
  - Peritonitis [Fatal]

NARRATIVE: CASE EVENT DATE: 2015
